FAERS Safety Report 4801143-0 (Version None)
Quarter: 2005Q4

REPORT INFORMATION
  Report Type: 
  Country: None (occurrence: None)
  Receive Date: 20051017
  Receipt Date: 20040225
  Transmission Date: 20060501
  Serious: Yes (Hospitalization)
  Sender: FDA-Public Use
  Company Number: DE-AMGEN-UK067600

PATIENT
  Sex: Male

DRUGS (1)
  1. NEUPOGEN [Suspect]
     Indication: PERIPHERAL BLOOD STEM CELL APHERESIS
     Route: 058
     Dates: start: 20040207, end: 20040211

REACTIONS (8)
  - DEMYELINATION [None]
  - ENCEPHALITIS [None]
  - FACIAL PALSY [None]
  - HYPOAESTHESIA [None]
  - INFLUENZA LIKE ILLNESS [None]
  - LEUKOCYTOSIS [None]
  - PAIN [None]
  - SPLENOMEGALY [None]
